FAERS Safety Report 21854639 (Version 1)
Quarter: 2023Q1

REPORT INFORMATION
  Report Type: Spontaneous
  Country: US (occurrence: US)
  Receive Date: 20230112
  Receipt Date: 20230112
  Transmission Date: 20230417
  Serious: No
  Sender: FDA-Public Use
  Company Number: US-PERRIGO-22US007597

PATIENT
  Age: 27 Year
  Sex: Female
  Weight: 99.773 kg

DRUGS (2)
  1. IBUPROFEN [Suspect]
     Active Substance: IBUPROFEN
     Indication: Dysmenorrhoea
     Dosage: 200 MG, Q6HRS
     Route: 048
     Dates: start: 20220503, end: 20220506
  2. IBUPROFEN [Suspect]
     Active Substance: IBUPROFEN
     Dosage: 200 MG SINGLE
     Route: 048
     Dates: start: 20220524, end: 20220524

REACTIONS (1)
  - Expired product administered [Recovered/Resolved]

NARRATIVE: CASE EVENT DATE: 20220503
